FAERS Safety Report 10197485 (Version 1)
Quarter: 2014Q2

REPORT INFORMATION
  Report Type: Spontaneous
  Country: BR (occurrence: BR)
  Receive Date: 20140527
  Receipt Date: 20140527
  Transmission Date: 20141212
  Serious: Yes (Death, Other)
  Sender: FDA-Public Use
  Company Number: BR-UCBSA-123152

PATIENT
  Age: 57 Year
  Sex: Female

DRUGS (3)
  1. CIMZIA [Suspect]
     Indication: RHEUMATOID ARTHRITIS
     Dosage: 200MG/ML
     Route: 058
     Dates: start: 201403
  2. PREDNISONE [Concomitant]
     Indication: RHEUMATOID ARTHRITIS
  3. IBUPROFEN [Concomitant]
     Indication: RHEUMATOID ARTHRITIS

REACTIONS (3)
  - Cerebral haemorrhage [Fatal]
  - Cardiac valve rupture [Fatal]
  - Haematemesis [Unknown]
